FAERS Safety Report 8585818-6 (Version None)
Quarter: 2012Q3

REPORT INFORMATION
  Report Type: 
  Country: None (occurrence: None)
  Receive Date: 20120810
  Receipt Date: 20120801
  Transmission Date: 20120928
  Serious: Yes (Hospitalization)
  Sender: FDA-Public Use
  Company Number: US-ELI_LILLY_AND_COMPANY-US201201009355

PATIENT
  Sex: Female

DRUGS (14)
  1. FORTEO [Suspect]
     Dosage: 20 UG, QD
     Route: 058
  2. CLOPIDOGREL [Concomitant]
     Dosage: 75 MG, EACH MORNING
     Route: 048
  3. PROVENTIL                               /USA/ [Concomitant]
     Dosage: UNK, EVERY 4 HRS
     Route: 055
  4. ACETAMINOPHEN [Concomitant]
     Indication: PAIN
     Dosage: 350 MG, PRN
  5. FUROSEMIDE [Concomitant]
     Dosage: 20 MG, EACH MORNING
     Route: 048
  6. LOVASTATIN [Concomitant]
     Dosage: 20 MG, EACH MORNING
     Route: 048
  7. THERA-M [Concomitant]
     Dosage: UNK, EACH MORNING
     Route: 048
  8. CYANOCOBALAMIN [Concomitant]
     Dosage: 50 UG, EACH MORNING
     Route: 048
  9. METOPROLOL SUCCINATE [Concomitant]
     Dosage: 25 MG, QD
     Route: 048
  10. FERROUS SULFATE TAB [Concomitant]
     Dosage: 325 MG, BID
     Route: 048
  11. HUMULIN R [Concomitant]
     Dosage: UNK, OTHER
     Route: 058
  12. LOVAZA [Concomitant]
     Dosage: UNK, TID
     Route: 048
  13. FORTEO [Suspect]
     Indication: OSTEOPOROSIS
     Dosage: 20 UG, QD
     Route: 058
     Dates: start: 20110401
  14. ATROVENT [Concomitant]
     Dosage: UNK, EVERY 4 HRS
     Route: 055

REACTIONS (7)
  - ILIAC ARTERY OCCLUSION [None]
  - AORTIC BYPASS [None]
  - AORTIC ANEURYSM [None]
  - VASCULAR GRAFT [None]
  - AORTIC CALCIFICATION [None]
  - PAIN [None]
  - SPINAL COMPRESSION FRACTURE [None]
